FAERS Safety Report 4980506-7 (Version None)
Quarter: 2006Q2

REPORT INFORMATION
  Report Type: 
  Country: None (occurrence: None)
  Receive Date: 20060424
  Receipt Date: 20060117
  Transmission Date: 20061013
  Serious: Yes (Hospitalization)
  Sender: FDA-Public Use
  Company Number: US-BRISTOL-MYERS SQUIBB COMPANY-13249248

PATIENT
  Age: 71 Year
  Sex: Female

DRUGS (7)
  1. ABILIFY [Suspect]
     Indication: SCHIZOAFFECTIVE DISORDER
     Dosage: DOSE REDUCED TO 5 MG DAILY
     Route: 048
     Dates: start: 20051209
  2. VICODIN [Concomitant]
  3. COZAAR [Concomitant]
  4. DILTIAZEM HCL [Concomitant]
  5. ISORDIL [Concomitant]
  6. PLAVIX [Concomitant]
  7. PREVACID [Concomitant]

REACTIONS (1)
  - VISUAL DISTURBANCE [None]
